FAERS Safety Report 17011775 (Version 2)
Quarter: 2019Q4

REPORT INFORMATION
  Report Type: Report from Study
  Country: US (occurrence: US)
  Receive Date: 20191108
  Receipt Date: 20191220
  Transmission Date: 20200122
  Serious: Yes (Hospitalization)
  Sender: FDA-Public Use
  Company Number: US-AVEXISPRA-CTR-AVXS12019-0029

PATIENT
  Age: 1 Year
  Sex: Female

DRUGS (5)
  1. NUSINERSEN [Concomitant]
     Active Substance: NUSINERSEN
     Dosage: UNK
     Dates: start: 20181031
  2. PULMOZYME [Concomitant]
     Active Substance: DORNASE ALFA
  3. AVXS-101 [Suspect]
     Active Substance: ONASEMNOGENE ABEPARVOVEC
     Indication: SPINAL MUSCULAR ATROPHY
     Dosage: UNK
     Route: 065
     Dates: start: 20190129, end: 20190129
  4. ALBUTEROL SULFATE. [Concomitant]
     Active Substance: ALBUTEROL SULFATE
  5. VITAMIN D EFFEKTIV [Concomitant]
     Active Substance: VITAMIN D NOS

REACTIONS (1)
  - Parainfluenzae virus infection [Recovered/Resolved]

NARRATIVE: CASE EVENT DATE: 20190829
